FAERS Safety Report 7499442-X (Version None)
Quarter: 2011Q2

REPORT INFORMATION
  Report Type: 
  Country: None (occurrence: None)
  Receive Date: 20110524
  Receipt Date: 20110511
  Transmission Date: 20111010
  Serious: Yes (Other)
  Sender: FDA-Public Use
  Company Number: PHHY2011BR40929

PATIENT
  Sex: Male
  Weight: 22 kg

DRUGS (1)
  1. TEGRETOL [Suspect]
     Indication: CONVULSION
     Dosage: 5 ML, BID
     Route: 048
     Dates: start: 20100201

REACTIONS (3)
  - PSYCHOMOTOR HYPERACTIVITY [None]
  - AUTISM [None]
  - CONVULSION [None]
